FAERS Safety Report 9373719 (Version 1)
Quarter: 2013Q2

REPORT INFORMATION
  Report Type: Report from Study
  Country: FR (occurrence: FR)
  Receive Date: 20130627
  Receipt Date: 20130627
  Transmission Date: 20140414
  Serious: Yes (Hospitalization)
  Sender: FDA-Public Use
  Company Number: FR-BAXTER-2013BAX023029

PATIENT
  Age: 25 Year
  Sex: Female

DRUGS (18)
  1. ENDOXAN 2000 MG, LYOPHILISAT POUR SOLUTION INJECTABLE [Suspect]
     Indication: HODGKIN^S DISEASE
     Route: 042
     Dates: start: 20130515, end: 20130515
  2. UROMITEXAN 1 G/10 ML, SOLUTION INJECTABLE POUR PERFUSION EN FLACON [Suspect]
     Indication: HODGKIN^S DISEASE
     Route: 042
     Dates: start: 20130515, end: 20130515
  3. PROCARBAZINE [Suspect]
     Indication: HODGKIN^S DISEASE
     Route: 042
     Dates: start: 20130515, end: 20130517
  4. PROCARBAZINE [Suspect]
     Route: 042
  5. PROCARBAZINE [Suspect]
     Dosage: SECOND COURSE OF CHEMOTHERAPY
  6. PREDNISONE [Suspect]
     Indication: HODGKIN^S DISEASE
     Dosage: ON DAY 1
     Route: 042
     Dates: start: 20130515, end: 20130517
  7. PREDNISONE [Suspect]
     Dosage: ON DAY 2 AND 3
     Route: 042
  8. DOXORUBICIN [Suspect]
     Indication: HODGKIN^S DISEASE
     Route: 042
     Dates: start: 20130515, end: 20130515
  9. ETOPOPHOS [Suspect]
     Indication: HODGKIN^S DISEASE
     Route: 042
     Dates: start: 20130515, end: 20130517
  10. ETOPOPHOS [Suspect]
     Dosage: ON DAY 2 AND 3
     Route: 042
  11. HYDROXYZINE [Suspect]
     Indication: INSOMNIA
     Dosage: 2 TABLETS
     Route: 048
     Dates: start: 20130514, end: 20130522
  12. VALACICLOVIR [Suspect]
     Indication: PRODUCT USED FOR UNKNOWN INDICATION
     Route: 048
     Dates: start: 20130517, end: 20130522
  13. BACTRIM [Suspect]
     Indication: PRODUCT USED FOR UNKNOWN INDICATION
     Dosage: 1 TAB
     Route: 048
     Dates: start: 20130517, end: 20130522
  14. CALCIUM FOLINATE [Suspect]
     Indication: PRODUCT USED FOR UNKNOWN INDICATION
     Dosage: 1 UNIT
     Route: 048
     Dates: start: 20130517, end: 20130522
  15. METOCLOPRAMIDE [Suspect]
     Indication: NAUSEA
     Route: 048
     Dates: start: 20130517, end: 20130522
  16. TRAMADOL HYDROCHLORIDE [Suspect]
     Indication: PRODUCT USED FOR UNKNOWN INDICATION
     Route: 048
     Dates: start: 20130517, end: 20130522
  17. LEVONORGESTREL AND ETINILESTRADIOL [Concomitant]
     Indication: CONTRACEPTION
     Dosage: 1 UNIT
     Route: 048
     Dates: start: 2012, end: 20130525
  18. PENTACARINAT AEROSOL [Concomitant]
     Indication: HODGKIN^S DISEASE
     Route: 065

REACTIONS (1)
  - Mixed liver injury [Recovered/Resolved]
